FAERS Safety Report 9942691 (Version 1)
Quarter: 2014Q1

REPORT INFORMATION
  Report Type: Report from Study
  Country: US (occurrence: US)
  Receive Date: 20140303
  Receipt Date: 20140303
  Transmission Date: 20141002
  Serious: No
  Sender: FDA-Public Use
  Company Number: US-ABBVIE-13P-163-1045891-00

PATIENT
  Age: 65 Year
  Sex: Female

DRUGS (5)
  1. HUMIRA [Suspect]
     Indication: COLITIS ULCERATIVE
     Route: 058
     Dates: start: 20130115
  2. LOPERAMIDE [Concomitant]
     Indication: DIARRHOEA
     Dosage: EVERY 6-8 HOURS AS NEEDED
  3. XANAX [Concomitant]
     Indication: INSOMNIA
     Dosage: AT BEDTIME AS NEEDED
  4. PREDNISONE [Concomitant]
     Indication: COLITIS ULCERATIVE
     Dosage: TAPERING DOSE 20MG DAILY
  5. PROZAC [Concomitant]
     Indication: DEPRESSION
     Dosage: 10MG DAILY

REACTIONS (1)
  - Injection site bruising [Recovered/Resolved]
